FAERS Safety Report 5307696-0 (Version None)
Quarter: 2007Q2

REPORT INFORMATION
  Report Type: 
  Country: None (occurrence: None)
  Receive Date: 20070425
  Receipt Date: 20070319
  Transmission Date: 20071010
  Serious: No
  Sender: FDA-Public Use
  Company Number: BR-PFIZER INC-2006095286

PATIENT
  Age: 68 Year
  Sex: Male

DRUGS (2)
  1. BEXTRA [Suspect]
     Indication: PAIN IN EXTREMITY
     Dosage: DAILY DOSE:40MG
     Route: 048
  2. ATENOLOL [Concomitant]
     Route: 048

REACTIONS (1)
  - URINE OUTPUT DECREASED [None]
